FAERS Safety Report 4423543-3 (Version None)
Quarter: 2004Q3

REPORT INFORMATION
  Report Type: 
  Country: None (occurrence: None)
  Receive Date: 20040811
  Receipt Date: 20040802
  Transmission Date: 20050211
  Serious: Yes (Other)
  Sender: FDA-Public Use
  Company Number: PHEH2004US08379

PATIENT
  Age: 33 Year
  Sex: Female

DRUGS (1)
  1. SERENTIL [Suspect]
     Indication: SCHIZOPHRENIA
     Dates: end: 20040401

REACTIONS (4)
  - AGGRESSION [None]
  - CATATONIA [None]
  - GAIT DISTURBANCE [None]
  - HALLUCINATION, AUDITORY [None]
